FAERS Safety Report 24911327 (Version 2)
Quarter: 2025Q2

REPORT INFORMATION
  Report Type: Report from Study
  Country: CA (occurrence: CA)
  Receive Date: 20250131
  Receipt Date: 20250401
  Transmission Date: 20250717
  Serious: Yes (Hospitalization, Other)
  Sender: CSL BEHRING
  Company Number: CA-BEH-2024170437

PATIENT
  Age: 9 Year
  Sex: Female

DRUGS (6)
  1. HIZENTRA [Suspect]
     Active Substance: HUMAN IMMUNOGLOBULIN G
     Indication: Primary immunodeficiency syndrome
     Dosage: 2 G, QW
     Route: 065
     Dates: start: 20240321
  2. HIZENTRA [Suspect]
     Active Substance: HUMAN IMMUNOGLOBULIN G
     Route: 065
     Dates: start: 20240405
  3. HIZENTRA [Suspect]
     Active Substance: HUMAN IMMUNOGLOBULIN G
     Route: 065
     Dates: start: 20240411
  4. HIZENTRA [Suspect]
     Active Substance: HUMAN IMMUNOGLOBULIN G
     Dosage: 4 G, QW
     Route: 065
  5. HIZENTRA [Suspect]
     Active Substance: HUMAN IMMUNOGLOBULIN G
     Dosage: (PRODUCT STRENGTH REPORTED 4 G), QW
     Route: 065
     Dates: start: 20240321
  6. EMLA [Concomitant]
     Active Substance: LIDOCAINE\PRILOCAINE
     Indication: Premedication

REACTIONS (33)
  - Lymphadenitis [Unknown]
  - Lymphadenopathy [Unknown]
  - Lymphadenitis [Unknown]
  - Injection site pruritus [Unknown]
  - Injection site pain [Unknown]
  - Dermatitis contact [Unknown]
  - Injection site erythema [Unknown]
  - Injection site induration [Unknown]
  - Incorrect dose administered [Unknown]
  - Product dose omission issue [Unknown]
  - Inappropriate schedule of product administration [Unknown]
  - Discomfort [Unknown]
  - Irritability [Unknown]
  - Injection site swelling [Unknown]
  - Injection site pain [Unknown]
  - Injection site swelling [Unknown]
  - Infusion site pain [Unknown]
  - Incorrect dose administered [Unknown]
  - Infusion site pain [Unknown]
  - Product dose omission in error [Unknown]
  - Cough [Unknown]
  - Feeling cold [Unknown]
  - Fear of injection [Unknown]
  - Product dose omission issue [Unknown]
  - Weight increased [Unknown]
  - Rhinorrhoea [Not Recovered/Not Resolved]
  - Cough [Unknown]
  - Productive cough [Unknown]
  - Decreased appetite [Unknown]
  - Pyrexia [Unknown]
  - Neck pain [Unknown]
  - Headache [Unknown]
  - Treatment delayed [Unknown]

NARRATIVE: CASE EVENT DATE: 20240101
